FAERS Safety Report 6967286-0 (Version None)
Quarter: 2010Q3

REPORT INFORMATION
  Report Type: 
  Country: None (occurrence: None)
  Receive Date: 20100901
  Receipt Date: 20100826
  Transmission Date: 20110219
  Serious: Yes (Hospitalization)
  Sender: FDA-Public Use
  Company Number: 2010MA002050

PATIENT
  Age: 74 Year
  Sex: Male

DRUGS (9)
  1. FLUOXETINE [Suspect]
     Dosage: 20 MG;QD
  2. CITALOPRAM HYDROBROMIDE [Suspect]
     Dosage: 20 MG;QD
  3. REBOXETINE (REBOXETINE) [Suspect]
     Dosage: 4 MG; QD;
  4. CIPROFLOXACIN [Suspect]
     Dosage: 500 MG; BID;
  5. OXYBUTYNIN [Concomitant]
  6. ACETYLSALICYLIC ACID [Concomitant]
  7. ENALAPRIL [Concomitant]
  8. SULPIRIDE [Concomitant]
  9. DIAZEPAM [Concomitant]

REACTIONS (11)
  - ABASIA [None]
  - CEREBELLAR INFARCTION [None]
  - CEREBELLAR ISCHAEMIA [None]
  - CHILLS [None]
  - COGNITIVE DISORDER [None]
  - DRUG INTERACTION [None]
  - DYSARTHRIA [None]
  - GAIT DISTURBANCE [None]
  - MYDRIASIS [None]
  - SEROTONIN SYNDROME [None]
  - URINARY RETENTION [None]
